FAERS Safety Report 20990230 (Version 1)
Quarter: 2022Q2

REPORT INFORMATION
  Report Type: Spontaneous
  Country: US (occurrence: US)
  Receive Date: 20220622
  Receipt Date: 20220622
  Transmission Date: 20220720
  Serious: No
  Sender: FDA-Public Use
  Company Number: US-009507513-2206USA003044

PATIENT
  Age: 64 Year
  Sex: Male

DRUGS (2)
  1. KEYTRUDA [Suspect]
     Active Substance: PEMBROLIZUMAB
     Indication: Progressive multifocal leukoencephalopathy
     Dosage: 2 G/KG, EVERY 4 WEEKS
     Route: 042
  2. RIVAROXABAN [Concomitant]
     Active Substance: RIVAROXABAN
     Indication: Pulmonary embolism
     Dosage: UNK

REACTIONS (1)
  - Off label use [Unknown]
